FAERS Safety Report 20711681 (Version 1)
Quarter: 2022Q2

REPORT INFORMATION
  Report Type: Spontaneous
  Country: US (occurrence: US)
  Receive Date: 20220414
  Receipt Date: 20220414
  Transmission Date: 20220721
  Serious: No
  Sender: FDA-Public Use
  Company Number: US-PFIZER INC-202101025516

PATIENT
  Age: 27 Year
  Sex: Female
  Weight: 53.07 kg

DRUGS (6)
  1. CHANTIX [Suspect]
     Active Substance: VARENICLINE TARTRATE
     Indication: Smoking cessation therapy
     Dosage: 1 MG, 2X/DAY (MORNING AND NIGHT)
  2. PRAZOSIN HYDROCHLORIDE [Concomitant]
     Active Substance: PRAZOSIN HYDROCHLORIDE
     Indication: Abnormal dreams
     Dosage: 2 MG, 1X/DAY
     Dates: start: 20210708
  3. PRAZOSIN HYDROCHLORIDE [Concomitant]
     Active Substance: PRAZOSIN HYDROCHLORIDE
     Indication: Sleep terror
  4. GABAPENTIN [Concomitant]
     Active Substance: GABAPENTIN
     Indication: Nerve injury
     Dosage: 100 MG, DAILY (ONE TO THREE CAPSULES BY MOUTH UP TO THREE TIMES DAY)
     Route: 048
  5. GABAPENTIN [Concomitant]
     Active Substance: GABAPENTIN
     Indication: Caesarean section
  6. LABETALOL [Concomitant]
     Active Substance: LABETALOL\LABETALOL HYDROCHLORIDE
     Indication: Hypertension
     Dosage: 100 MG, 2X/DAY

REACTIONS (3)
  - Recalled product administered [Unknown]
  - Abnormal dreams [Unknown]
  - Sleep terror [Unknown]
